FAERS Safety Report 4653333-8 (Version None)
Quarter: 2005Q2

REPORT INFORMATION
  Report Type: 
  Country: None (occurrence: None)
  Receive Date: 20050503
  Receipt Date: 20050420
  Transmission Date: 20051028
  Serious: Yes (Other)
  Sender: FDA-Public Use
  Company Number: 2005063885

PATIENT
  Age: 22 Year
  Sex: Male
  Weight: 76.4 kg

DRUGS (5)
  1. GENOTROPIN [Suspect]
     Indication: HYPOPITUITARISM
     Dosage: 0.3 MG (0.3 MG, EVERYDAY), SUBCUTANEOUS
     Route: 058
     Dates: start: 20041122, end: 20050410
  2. LEVOTHYROXINE SODIUM [Concomitant]
  3. DESMOPRESSIN (DESMOPRESIN) [Concomitant]
  4. TESTOSTERONE [Concomitant]
  5. HYDROCORTISONE [Concomitant]

REACTIONS (2)
  - CONDITION AGGRAVATED [None]
  - CYST [None]
